FAERS Safety Report 9439288 (Version 1)
Quarter: 2013Q3

REPORT INFORMATION
  Report Type: Spontaneous
  Country: GB (occurrence: GB)
  Receive Date: 20130804
  Receipt Date: 20130804
  Transmission Date: 20140515
  Serious: No
  Sender: FDA-Public Use
  Company Number: GB-ROCHE-1231254

PATIENT
  Sex: 0

DRUGS (2)
  1. RITUXIMAB [Suspect]
     Indication: RHEUMATOID ARTHRITIS
     Route: 042
     Dates: start: 20130409
  2. RITUXIMAB [Suspect]
     Indication: PARAPROTEINAEMIA

REACTIONS (1)
  - Hypersensitivity [Unknown]
